FAERS Safety Report 26118204 (Version 1)
Quarter: 2025Q4

REPORT INFORMATION
  Report Type: Spontaneous
  Country: EU (occurrence: EU)
  Receive Date: 20251203
  Receipt Date: 20251203
  Transmission Date: 20260118
  Serious: Yes (Other)
  Sender: MYLAN
  Company Number: EU-CHEPLA-2025012935

PATIENT
  Age: 63 Year
  Sex: Female

DRUGS (24)
  1. DOXORUBICIN [Suspect]
     Active Substance: DOXORUBICIN
     Indication: Adrenocortical carcinoma
     Dosage: UNK, FIRST-LINE CHEMOTHERAPY
  2. DOXORUBICIN [Suspect]
     Active Substance: DOXORUBICIN
     Indication: Metastases to lung
     Dosage: UNK, FIRST-LINE CHEMOTHERAPY
     Route: 065
  3. DOXORUBICIN [Suspect]
     Active Substance: DOXORUBICIN
     Dosage: UNK, FIRST-LINE CHEMOTHERAPY
     Route: 065
  4. DOXORUBICIN [Suspect]
     Active Substance: DOXORUBICIN
     Dosage: UNK, FIRST-LINE CHEMOTHERAPY
  5. ETOPOSIDE [Suspect]
     Active Substance: ETOPOSIDE
     Indication: Adrenocortical carcinoma
     Dosage: UNK
  6. ETOPOSIDE [Suspect]
     Active Substance: ETOPOSIDE
     Indication: Metastases to lung
     Dosage: UNK
  7. ETOPOSIDE [Suspect]
     Active Substance: ETOPOSIDE
     Dosage: UNK
     Route: 065
  8. ETOPOSIDE [Suspect]
     Active Substance: ETOPOSIDE
     Dosage: UNK
     Route: 065
  9. ETOPOSIDE [Suspect]
     Active Substance: ETOPOSIDE
     Dosage: UNK, FIRST-LINE CHEMOTHERAPY
  10. ETOPOSIDE [Suspect]
     Active Substance: ETOPOSIDE
     Dosage: UNK, FIRST-LINE CHEMOTHERAPY
  11. ETOPOSIDE [Suspect]
     Active Substance: ETOPOSIDE
     Dosage: UNK, FIRST-LINE CHEMOTHERAPY
     Route: 065
  12. ETOPOSIDE [Suspect]
     Active Substance: ETOPOSIDE
     Dosage: UNK, FIRST-LINE CHEMOTHERAPY
     Route: 065
  13. CISPLATIN [Suspect]
     Active Substance: CISPLATIN
     Indication: Metastases to lung
     Dosage: UNK, FIRST-LINE CHEMOTHERAPY
  14. CISPLATIN [Suspect]
     Active Substance: CISPLATIN
     Dosage: UNK, FIRST-LINE CHEMOTHERAPY
     Route: 065
  15. CISPLATIN [Suspect]
     Active Substance: CISPLATIN
     Dosage: UNK, FIRST-LINE CHEMOTHERAPY
     Route: 065
  16. CISPLATIN [Suspect]
     Active Substance: CISPLATIN
     Dosage: UNK, FIRST-LINE CHEMOTHERAPY
  17. MITOTANE [Suspect]
     Active Substance: MITOTANE
     Indication: Adrenocortical carcinoma
     Dosage: UNK
  18. MITOTANE [Suspect]
     Active Substance: MITOTANE
     Indication: Metastases to lung
     Dosage: UNK
     Route: 065
  19. MITOTANE [Suspect]
     Active Substance: MITOTANE
     Dosage: UNK
     Route: 065
  20. MITOTANE [Suspect]
     Active Substance: MITOTANE
     Dosage: UNK
  21. PEMBROLIZUMAB [Suspect]
     Active Substance: PEMBROLIZUMAB
     Indication: Adrenocortical carcinoma
     Dosage: 11 DECEMBER
  22. PEMBROLIZUMAB [Suspect]
     Active Substance: PEMBROLIZUMAB
     Indication: Metastases to lung
     Dosage: 11 DECEMBER
     Route: 065
  23. PEMBROLIZUMAB [Suspect]
     Active Substance: PEMBROLIZUMAB
     Dosage: 11 DECEMBER
     Route: 065
  24. PEMBROLIZUMAB [Suspect]
     Active Substance: PEMBROLIZUMAB
     Dosage: 11 DECEMBER

REACTIONS (4)
  - Autoimmune hepatitis [Unknown]
  - Addison^s disease [Unknown]
  - Hyponatraemia [Unknown]
  - Off label use [Unknown]
